FAERS Safety Report 10516123 (Version 1)
Quarter: 2014Q3

REPORT INFORMATION
  Report Type: Spontaneous
  Country: US (occurrence: None)
  Receive Date: 20140929
  Receipt Date: 20140929
  Transmission Date: 20150326
  Serious: Yes (Other)
  Sender: FDA-Public Use
  Company Number: 2012AP035878

PATIENT
  Age: 73 Year
  Sex: Female

DRUGS (1)
  1. CLARITIN [Suspect]
     Active Substance: LORATADINE
     Indication: SEASONAL ALLERGY
     Route: 048
     Dates: start: 20120510

REACTIONS (2)
  - Hypersensitivity [None]
  - Pruritus [None]

NARRATIVE: CASE EVENT DATE: 201205
